FAERS Safety Report 25599633 (Version 1)
Quarter: 2025Q3

REPORT INFORMATION
  Report Type: Spontaneous
  Country: US (occurrence: US)
  Receive Date: 20250724
  Receipt Date: 20250724
  Transmission Date: 20251020
  Serious: Yes (Other)
  Sender: SAMSUNG BIOEPIS
  Company Number: US-SAMSUNG BIOEPIS-SB-2025-24687

PATIENT
  Sex: Female

DRUGS (1)
  1. INFLIXIMAB [Suspect]
     Active Substance: INFLIXIMAB
     Indication: Myocarditis-myositis-myasthenia gravis overlap syndrome

REACTIONS (5)
  - Atrioventricular block complete [Unknown]
  - Respiratory failure [Unknown]
  - Asthenia [Unknown]
  - Drug resistance [Unknown]
  - Off label use [Unknown]
